FAERS Safety Report 18627063 (Version 1)
Quarter: 2020Q4

REPORT INFORMATION
  Report Type: Spontaneous
  Country: GB (occurrence: GB)
  Receive Date: 20201217
  Receipt Date: 20201217
  Transmission Date: 20210114
  Serious: Yes (Hospitalization)
  Sender: FDA-Public Use
  Company Number: GB-JNJFOC-20201224442

PATIENT

DRUGS (1)
  1. REMICADE [Suspect]
     Active Substance: INFLIXIMAB
     Indication: CROHN^S DISEASE
     Dosage: FOR MANY YEARS.
     Route: 042

REACTIONS (10)
  - Asthenia [Unknown]
  - Agitation [Unknown]
  - Tremor [Unknown]
  - Palpitations [Unknown]
  - Fatigue [Unknown]
  - Tachycardia paroxysmal [Recovered/Resolved with Sequelae]
  - Chest pain [Unknown]
  - Dyspnoea [Unknown]
  - Insomnia [Unknown]
  - Heart rate increased [Unknown]
